FAERS Safety Report 24968098 (Version 1)
Quarter: 2025Q1

REPORT INFORMATION
  Report Type: Other
  Country: US (occurrence: US)
  Receive Date: 20250214
  Receipt Date: 20250214
  Transmission Date: 20250409
  Serious: No
  Sender: AVEO PHARMACEUTICALS
  Company Number: US-AVEO PHARMACEUTICALS, INC.-2025-AVEO-US000009

PATIENT

DRUGS (30)
  1. FOTIVDA [Suspect]
     Active Substance: TIVOZANIB HYDROCHLORIDE
     Indication: Clear cell renal cell carcinoma
     Route: 048
  2. FOTIVDA [Suspect]
     Active Substance: TIVOZANIB HYDROCHLORIDE
     Indication: Metastases to lung
  3. FOTIVDA [Suspect]
     Active Substance: TIVOZANIB HYDROCHLORIDE
     Indication: Metastases to the mediastinum
  4. LENVATINIB [Suspect]
     Active Substance: LENVATINIB
     Indication: Clear cell renal cell carcinoma
     Route: 065
  5. LENVATINIB [Suspect]
     Active Substance: LENVATINIB
     Indication: Metastases to lung
  6. LENVATINIB [Suspect]
     Active Substance: LENVATINIB
     Indication: Metastases to the mediastinum
  7. AXITINIB [Suspect]
     Active Substance: AXITINIB
     Indication: Clear cell renal cell carcinoma
     Route: 065
  8. AXITINIB [Suspect]
     Active Substance: AXITINIB
     Indication: Metastases to lung
  9. AXITINIB [Suspect]
     Active Substance: AXITINIB
     Indication: Metastases to the mediastinum
  10. PAZOPANIB [Suspect]
     Active Substance: PAZOPANIB
     Indication: Clear cell renal cell carcinoma
     Route: 065
  11. PAZOPANIB [Suspect]
     Active Substance: PAZOPANIB
     Indication: Metastases to lung
  12. PAZOPANIB [Suspect]
     Active Substance: PAZOPANIB
     Indication: Metastases to the mediastinum
  13. EVEROLIMUS [Suspect]
     Active Substance: EVEROLIMUS
     Indication: Clear cell renal cell carcinoma
     Route: 065
  14. EVEROLIMUS [Suspect]
     Active Substance: EVEROLIMUS
     Indication: Metastases to lung
  15. EVEROLIMUS [Suspect]
     Active Substance: EVEROLIMUS
     Indication: Metastases to the mediastinum
  16. SUNITINIB [Suspect]
     Active Substance: SUNITINIB
     Indication: Clear cell renal cell carcinoma
     Route: 065
  17. SUNITINIB [Suspect]
     Active Substance: SUNITINIB
     Indication: Metastases to lung
  18. SUNITINIB [Suspect]
     Active Substance: SUNITINIB
     Indication: Metastases to the mediastinum
  19. PEMBROLIZUMAB [Suspect]
     Active Substance: PEMBROLIZUMAB
     Indication: Clear cell renal cell carcinoma
     Route: 065
  20. PEMBROLIZUMAB [Suspect]
     Active Substance: PEMBROLIZUMAB
     Indication: Metastases to lung
  21. PEMBROLIZUMAB [Suspect]
     Active Substance: PEMBROLIZUMAB
     Indication: Metastases to the mediastinum
  22. IPILIMUMAB [Suspect]
     Active Substance: IPILIMUMAB
     Indication: Clear cell renal cell carcinoma
     Route: 065
  23. IPILIMUMAB [Suspect]
     Active Substance: IPILIMUMAB
     Indication: Metastases to lung
  24. IPILIMUMAB [Suspect]
     Active Substance: IPILIMUMAB
     Indication: Metastases to the mediastinum
  25. CABOZANTINIB [Suspect]
     Active Substance: CABOZANTINIB
     Indication: Clear cell renal cell carcinoma
     Route: 065
  26. CABOZANTINIB [Suspect]
     Active Substance: CABOZANTINIB
     Indication: Metastases to lung
  27. CABOZANTINIB [Suspect]
     Active Substance: CABOZANTINIB
     Indication: Metastases to the mediastinum
  28. NIVOLUMAB [Suspect]
     Active Substance: NIVOLUMAB
     Indication: Clear cell renal cell carcinoma
     Route: 065
  29. NIVOLUMAB [Suspect]
     Active Substance: NIVOLUMAB
     Indication: Metastases to lung
  30. NIVOLUMAB [Suspect]
     Active Substance: NIVOLUMAB
     Indication: Metastases to the mediastinum

REACTIONS (2)
  - Disease progression [Unknown]
  - Drug ineffective [Unknown]
